FAERS Safety Report 20169807 (Version 3)
Quarter: 2022Q3

REPORT INFORMATION
  Report Type: Spontaneous
  Country: UA (occurrence: UA)
  Receive Date: 20211210
  Receipt Date: 20220721
  Transmission Date: 20221027
  Serious: Yes (Death, Other)
  Sender: FDA-Public Use
  Company Number: UA-ABBVIE-21K-269-4194564-00

PATIENT
  Age: 72 Year
  Sex: Male

DRUGS (2)
  1. VENETOCLAX [Suspect]
     Active Substance: VENETOCLAX
     Indication: Acute lymphocytic leukaemia
     Route: 048
     Dates: start: 20211206, end: 20211206
  2. VENETOCLAX [Suspect]
     Active Substance: VENETOCLAX
     Route: 048
     Dates: start: 20211207, end: 20211207

REACTIONS (4)
  - Multiple organ dysfunction syndrome [Fatal]
  - Acute lymphocytic leukaemia [Fatal]
  - Tumour lysis syndrome [Unknown]
  - Off label use [Recovered/Resolved]

NARRATIVE: CASE EVENT DATE: 20210101
